FAERS Safety Report 6286950-2 (Version None)
Quarter: 2009Q3

REPORT INFORMATION
  Report Type: 
  Country: None (occurrence: None)
  Receive Date: 20090728
  Receipt Date: 20090722
  Transmission Date: 20100115
  Serious: Yes (Hospitalization)
  Sender: FDA-Public Use
  Company Number: FR-B.I. PHARMACEUTICALS,INC./RIDGEFIELD-2009-FF-00521FF

PATIENT
  Sex: Female

DRUGS (16)
  1. ATROVENT [Suspect]
     Indication: ASTHMA
     Dosage: 3  X 3 EVERY 3 HOURS
     Route: 048
     Dates: start: 20081021, end: 20081021
  2. SOLU-MEDROL [Suspect]
     Indication: ASTHMA
     Route: 042
     Dates: start: 20081021, end: 20081021
  3. SOLU-MEDROL [Suspect]
     Dosage: 40 MG
     Route: 042
     Dates: start: 20081022, end: 20081022
  4. SOLU-MEDROL [Suspect]
     Dosage: 400 MG
     Route: 042
     Dates: start: 20081023, end: 20081023
  5. BRICANYL [Suspect]
     Indication: ASTHMA
     Dosage: 0.5 MG/L ML 3 EVERY 3 HOURS
     Route: 030
     Dates: start: 20081021, end: 20081021
  6. VENTOLIN [Concomitant]
     Indication: ASTHMA
     Route: 045
     Dates: end: 20081028
  7. SERETIDE [Concomitant]
     Indication: ASTHMA
     Dosage: 2 PUF
     Route: 055
  8. XYZAL [Concomitant]
     Indication: ASTHMA
     Route: 048
  9. APIDRA [Concomitant]
     Indication: DIABETES MELLITUS
     Dosage: 100 UNITS/ML
     Route: 058
  10. TAHOR [Concomitant]
     Indication: MYOCARDIAL ISCHAEMIA
     Dosage: 10 MG
     Route: 048
  11. DIAMICRON [Concomitant]
     Indication: DIABETES MELLITUS
     Dosage: 90 MG
     Route: 048
  12. LANTUS [Concomitant]
     Indication: DIABETES MELLITUS
     Dosage: 100 UNITS/ML
     Route: 058
  13. TRIATEC [Concomitant]
     Indication: HYPERTENSIVE HEART DISEASE
     Dosage: 5 MG
     Route: 048
  14. ISOPTIN [Concomitant]
     Indication: HYPERTENSIVE HEART DISEASE
     Dosage: 240 MG
     Route: 048
  15. ADANCOR [Concomitant]
     Dosage: 20 MG
     Route: 048
  16. KARDEGIC [Concomitant]
     Indication: MYOCARDIAL ISCHAEMIA
     Dosage: 75 MG
     Route: 048

REACTIONS (1)
  - BLOOD GLUCOSE INCREASED [None]
